FAERS Safety Report 22267721 (Version 1)
Quarter: 2023Q2

REPORT INFORMATION
  Report Type: Spontaneous
  Country: US (occurrence: US)
  Receive Date: 20230430
  Receipt Date: 20230430
  Transmission Date: 20230722
  Serious: No
  Sender: FDA-Public Use
  Company Number: US-drreddys-SPO/USA/23/0163651

PATIENT
  Sex: Male

DRUGS (1)
  1. HABITROL [Suspect]
     Active Substance: NICOTINE
     Indication: Product used for unknown indication
     Route: 062
     Dates: start: 20230404

REACTIONS (1)
  - Abnormal dreams [Unknown]

NARRATIVE: CASE EVENT DATE: 20230404
